FAERS Safety Report 12310909 (Version 1)
Quarter: 2016Q2

REPORT INFORMATION
  Report Type: Spontaneous
  Country: US (occurrence: US)
  Receive Date: 20160427
  Receipt Date: 20160427
  Transmission Date: 20160815
  Serious: Yes (Other)
  Sender: FDA-Public Use
  Company Number: US-LPDUSPRD-20160345

PATIENT
  Age: 21 Year
  Sex: Female

DRUGS (1)
  1. MAGNESIUM SULFATE INJECTION, USP (2602-25) [Suspect]
     Active Substance: MAGNESIUM SULFATE
     Dosage: 4 MG X4 DOSES
     Route: 042

REACTIONS (3)
  - Toxicity to various agents [Unknown]
  - Ileus paralytic [Unknown]
  - Exposure during pregnancy [Recovered/Resolved]
